FAERS Safety Report 14989123 (Version 1)
Quarter: 2018Q2

REPORT INFORMATION
  Report Type: Report from Study
  Country: CA (occurrence: CA)
  Receive Date: 20180608
  Receipt Date: 20180608
  Transmission Date: 20180711
  Serious: Yes (Other)
  Sender: FDA-Public Use
  Company Number: CA-JNJFOC-20180601102

PATIENT
  Age: 55 Year
  Sex: Male
  Weight: 91.8 kg

DRUGS (1)
  1. REMICADE [Suspect]
     Active Substance: INFLIXIMAB
     Indication: CROHN^S DISEASE
     Dosage: STRENGTH = 100 MG
     Route: 042
     Dates: start: 20110506

REACTIONS (10)
  - Fatigue [Unknown]
  - Decreased appetite [Unknown]
  - General physical health deterioration [Not Recovered/Not Resolved]
  - Off label use [Unknown]
  - Haematochezia [Recovered/Resolved]
  - Salmonellosis [Recovering/Resolving]
  - Product use issue [Unknown]
  - Abdominal pain [Not Recovered/Not Resolved]
  - Mucous stools [Recovered/Resolved]
  - Diarrhoea [Recovering/Resolving]

NARRATIVE: CASE EVENT DATE: 20110506
